FAERS Safety Report 15085141 (Version 3)
Quarter: 2019Q1

REPORT INFORMATION
  Report Type: Spontaneous
  Country: US (occurrence: US)
  Receive Date: 20180628
  Receipt Date: 20190118
  Transmission Date: 20190417
  Serious: No
  Sender: FDA-Public Use
  Company Number: US-VIFOR (INTERNATIONAL) INC.-VIT-2018-06344

PATIENT
  Age: 68 Year
  Sex: Male
  Weight: 101.24 kg

DRUGS (13)
  1. CRESTOR [Concomitant]
     Active Substance: ROSUVASTATIN CALCIUM
  2. FENOFIBRATE. [Concomitant]
     Active Substance: FENOFIBRATE
  3. METOPROLOL TARTRATE. [Concomitant]
     Active Substance: METOPROLOL TARTRATE
  4. NITROGLYCERIN. [Concomitant]
     Active Substance: NITROGLYCERIN
  5. CARDIZEM [Concomitant]
     Active Substance: DILTIAZEM HYDROCHLORIDE
  6. VELTASSA [Suspect]
     Active Substance: PATIROMER
     Indication: HYPERKALAEMIA
     Route: 048
     Dates: start: 20180605, end: 20181113
  7. FISH OIL OMEGA-3 [Concomitant]
  8. ISOSORBIDE MONONITRATE. [Concomitant]
     Active Substance: ISOSORBIDE MONONITRATE
  9. ASPIR 81 [Concomitant]
     Active Substance: ASPIRIN
  10. CARVEDILOL. [Concomitant]
     Active Substance: CARVEDILOL
  11. LEVEMIR [Concomitant]
     Active Substance: INSULIN DETEMIR
  12. NOVOLOG [Concomitant]
     Active Substance: INSULIN ASPART
  13. VICTOZA [Concomitant]
     Active Substance: LIRAGLUTIDE

REACTIONS (2)
  - Treatment noncompliance [Not Recovered/Not Resolved]
  - Constipation [Recovered/Resolved]

NARRATIVE: CASE EVENT DATE: 201806
